FAERS Safety Report 9466618 (Version 3)
Quarter: 2013Q3

REPORT INFORMATION
  Report Type: Report from Study
  Country: GB (occurrence: GB)
  Receive Date: 20130820
  Receipt Date: 20130830
  Transmission Date: 20140515
  Serious: Yes (Hospitalization)
  Sender: FDA-Public Use
  Company Number: PHHY2013GB087608

PATIENT
  Age: 79 Year
  Sex: Female

DRUGS (12)
  1. RAMIPRIL [Suspect]
     Route: 048
  2. BISOPROLOL FUMARATE [Suspect]
  3. BISOPROLOL FUMARATE [Suspect]
     Route: 065
  4. ATENOLOL [Concomitant]
     Indication: MYOCARDIAL INFARCTION
     Route: 048
  5. ATENOLOL [Concomitant]
     Route: 065
  6. SIMVASTATIN [Concomitant]
     Indication: MYOCARDIAL INFARCTION
     Route: 048
  7. SIMVASTATIN [Concomitant]
     Route: 065
  8. TAMOXIFEN [Concomitant]
     Indication: BREAST CANCER
     Route: 048
  9. TAMOXIFEN [Concomitant]
     Route: 065
  10. ASA [Concomitant]
     Dosage: 75 MG, UNK
     Route: 048
  11. ASA [Concomitant]
     Route: 065
  12. AZD 6140 [Concomitant]
     Indication: CORONARY ARTERY DISEASE
     Dates: start: 20110721

REACTIONS (5)
  - Circulatory collapse [Recovered/Resolved]
  - Hand fracture [Recovered/Resolved]
  - Fall [Recovered/Resolved]
  - Hypotension [Recovered/Resolved]
  - Vomiting [Recovered/Resolved]
